FAERS Safety Report 17608085 (Version 1)
Quarter: 2020Q2

REPORT INFORMATION
  Report Type: Spontaneous
  Country: US (occurrence: US)
  Receive Date: 20200401
  Receipt Date: 20200401
  Transmission Date: 20200713
  Serious: No
  Sender: FDA-Public Use
  Company Number: US-JNJFOC-20200244569

PATIENT
  Age: 69 Year
  Sex: Female
  Weight: 56.3 kg

DRUGS (2)
  1. WOMENS ROGAINE UNSCENTED [Suspect]
     Active Substance: MINOXIDIL
     Indication: ALOPECIA
     Dosage: DOSE :MEASURE IT IN A SMALL DISH AND FREQUENCY: ONCE
     Route: 061
     Dates: start: 2018
  2. WOMENS ROGAINE UNSCENTED [Suspect]
     Active Substance: MINOXIDIL
     Dosage: DOSE :MEASURE IT IN A SMALL DISH AND FREQUENCY: ONCE.?THE PRODUCT WAS LAST ADMINISTERED ON 27/FEB/20
     Route: 061
     Dates: start: 20200226

REACTIONS (1)
  - Alopecia [Not Recovered/Not Resolved]

NARRATIVE: CASE EVENT DATE: 202001
